FAERS Safety Report 9767725 (Version 3)
Quarter: 2014Q2

REPORT INFORMATION
  Report Type: Spontaneous
  Country: US (occurrence: US)
  Receive Date: 20131217
  Receipt Date: 20140519
  Transmission Date: 20141212
  Serious: No
  Sender: FDA-Public Use
  Company Number: US-GILEAD-2013-0090090

PATIENT
  Sex: Male

DRUGS (2)
  1. LETAIRIS [Suspect]
     Indication: PULMONARY HYPERTENSION
     Dosage: 10 MG, UNK
     Route: 065
  2. LETAIRIS [Suspect]
     Indication: DOUBLE HETEROZYGOUS SICKLING DISORDERS

REACTIONS (4)
  - Weight increased [Unknown]
  - Eye swelling [Unknown]
  - Dark circles under eyes [Unknown]
  - Nasal congestion [Unknown]
